FAERS Safety Report 8096653-X (Version None)
Quarter: 2012Q1

REPORT INFORMATION
  Report Type: 
  Country: None (occurrence: None)
  Receive Date: 20120129
  Receipt Date: 20111228
  Transmission Date: 20120608
  Serious: No
  Sender: FDA-Public Use
  Company Number: US-ABBOTT-11P-163-0880313-00

PATIENT
  Sex: Female
  Weight: 85.352 kg

DRUGS (8)
  1. HUMIRA [Suspect]
     Indication: PSORIATIC ARTHROPATHY
     Route: 058
     Dates: start: 20091101, end: 20101101
  2. PROTONIX [Suspect]
     Indication: GASTROOESOPHAGEAL REFLUX DISEASE
  3. HUMIRA [Suspect]
     Indication: SCLERITIS
     Route: 058
     Dates: start: 20110901
  4. BUSPAR [Suspect]
     Indication: ANXIETY
  5. ACETAMINOPHEN [Concomitant]
     Indication: PAIN
  6. SINGULAIR [Suspect]
     Indication: ASTHMA
  7. ALBUTEROL [Suspect]
     Indication: ASTHMA
  8. PREDNISONE TAB [Suspect]
     Indication: SCLERITIS

REACTIONS (8)
  - SYRINGE ISSUE [None]
  - DRUG DOSE OMISSION [None]
  - INJECTION SITE PAIN [None]
  - PAIN IN EXTREMITY [None]
  - ABDOMINAL PAIN UPPER [None]
  - OFF LABEL USE [None]
  - WRONG TECHNIQUE IN DRUG USAGE PROCESS [None]
  - INCORRECT DOSE ADMINISTERED [None]
